FAERS Safety Report 14926655 (Version 1)
Quarter: 2018Q2

REPORT INFORMATION
  Report Type: Spontaneous
  Country: US (occurrence: US)
  Receive Date: 20180523
  Receipt Date: 20180523
  Transmission Date: 20180711
  Serious: Yes (Other)
  Sender: FDA-Public Use
  Company Number: US-ROCHE-2126561

PATIENT
  Sex: Male

DRUGS (7)
  1. TYLENOL [Concomitant]
     Active Substance: ACETAMINOPHEN
  2. TAMSULOSIN [Concomitant]
     Active Substance: TAMSULOSIN
  3. ZOFRAN [Concomitant]
     Active Substance: ONDANSETRON HYDROCHLORIDE
  4. COTELLIC [Suspect]
     Active Substance: COBIMETINIB
     Indication: METASTASIS
     Dosage: DAILY FOR 21 DAYS ON THEN 7 DAYS OFF; ONGOING
     Route: 048
     Dates: start: 20180116
  5. ZELBORAF [Suspect]
     Active Substance: VEMURAFENIB
     Indication: METASTASIS
     Dosage: ONGOING
     Route: 048
     Dates: start: 20180116
  6. LOSARTAN. [Concomitant]
     Active Substance: LOSARTAN
  7. ATORVASTATIN [Concomitant]
     Active Substance: ATORVASTATIN

REACTIONS (1)
  - Blood bilirubin increased [Unknown]
